FAERS Safety Report 4816767-4 (Version None)
Quarter: 2005Q4

REPORT INFORMATION
  Report Type: 
  Country: None (occurrence: None)
  Receive Date: 20051028
  Receipt Date: 20051018
  Transmission Date: 20060501
  Serious: Yes (Other)
  Sender: FDA-Public Use
  Company Number: 2005144042

PATIENT
  Age: 52 Year
  Sex: Female
  Weight: 45.3597 kg

DRUGS (1)
  1. ESTRING [Suspect]
     Dosage: (ONE RING EVERY 3 MONTHS), VAGINAL
     Route: 067

REACTIONS (3)
  - CERVICAL POLYP [None]
  - OVARIAN CYST [None]
  - VAGINAL HAEMORRHAGE [None]
